FAERS Safety Report 13013292 (Version 1)
Quarter: 2016Q4

REPORT INFORMATION
  Report Type: Spontaneous
  Country: US (occurrence: US)
  Receive Date: 20161209
  Receipt Date: 20161209
  Transmission Date: 20170207
  Serious: No
  Sender: FDA-Public Use
  Company Number: US-ASTELLAS-2016US043488

PATIENT
  Sex: Male

DRUGS (1)
  1. CRESEMBA [Suspect]
     Active Substance: ISAVUCONAZONIUM SULFATE
     Indication: FUNGAL INFECTION
     Dosage: 372 MG, ONCE DAILY (TWO 186MG TABLETS EVERY 24 HOURS FOR 28 DAYS)
     Route: 048

REACTIONS (1)
  - Off label use [Not Recovered/Not Resolved]
